FAERS Safety Report 22120229 (Version 1)
Quarter: 2023Q1

REPORT INFORMATION
  Report Type: Report from Study
  Country: US (occurrence: US)
  Receive Date: 20230321
  Receipt Date: 20230321
  Transmission Date: 20230418
  Serious: Yes (Hospitalization, Other)
  Sender: FDA-Public Use
  Company Number: US-002147023-NVSC2023US060335

PATIENT
  Age: 76 Year
  Sex: Female
  Weight: 79.8 kg

DRUGS (2)
  1. ILARIS [Suspect]
     Active Substance: CANAKINUMAB
     Indication: Pancreatic carcinoma metastatic
     Dosage: 250 MG, QMO
     Route: 058
     Dates: start: 20230119, end: 20230217
  2. GEMCITABINE [Suspect]
     Active Substance: GEMCITABINE
     Indication: Pancreatic carcinoma metastatic
     Dosage: 155 MG, QW
     Route: 042
     Dates: start: 20230119, end: 20230222

REACTIONS (10)
  - Diarrhoea [Recovering/Resolving]
  - Hallucination [Unknown]
  - Hypothermia [Unknown]
  - Dumping syndrome [Recovering/Resolving]
  - Abdominal pain [Unknown]
  - Muscle spasms [Recovering/Resolving]
  - Dizziness [Unknown]
  - Chills [Unknown]
  - Blood glucose decreased [Unknown]
  - Product use in unapproved indication [Unknown]

NARRATIVE: CASE EVENT DATE: 20230301
